FAERS Safety Report 12460508 (Version 2)
Quarter: 2016Q2

REPORT INFORMATION
  Report Type: Report from Study
  Country: DK (occurrence: DK)
  Receive Date: 20160613
  Receipt Date: 20160621
  Transmission Date: 20160815
  Serious: Yes (Hospitalization)
  Sender: FDA-Public Use
  Company Number: DK-AMGEN-DNKCT2016074897

PATIENT
  Age: 64 Year
  Sex: Female

DRUGS (15)
  1. IMMUNOGLOBULIN [Concomitant]
     Active Substance: HUMAN IMMUNOGLOBULIN G
     Dosage: 20 G, UNK
     Route: 042
     Dates: start: 20131218
  2. METOCLOPRAMID [Concomitant]
     Active Substance: METOCLOPRAMIDE
     Dosage: 30 MG, UNK
     Route: 048
     Dates: start: 20160331
  3. LANSOPRAZOL [Concomitant]
     Active Substance: LANSOPRAZOLE
     Dosage: 15-30 MG, UNK
     Route: 048
     Dates: start: 20151116
  4. CARFILZOMIB [Suspect]
     Active Substance: CARFILZOMIB
     Indication: PLASMA CELL MYELOMA
     Dosage: UNK UNK, PER CHEMO REGIM
     Route: 042
     Dates: start: 20160331
  5. ACICLOVIR [Concomitant]
     Active Substance: ACYCLOVIR
     Dosage: 200-400 MG
     Route: 048
     Dates: start: 20160331
  6. MAGNESIUMOXIDE [Concomitant]
     Active Substance: MAGNESIUM OXIDE
     Dosage: 360-1000 MG, UNK
     Route: 048
     Dates: start: 20150907
  7. FLUCONAZOL [Concomitant]
     Active Substance: FLUCONAZOLE
     Dosage: 50 MG, UNK
     Route: 048
     Dates: start: 20160510, end: 20160517
  8. ALLOPURINOL. [Concomitant]
     Active Substance: ALLOPURINOL
     Dosage: 100-300 MG
     Route: 048
     Dates: start: 20160331
  9. DARBEPOETIN ALFA [Concomitant]
     Active Substance: DARBEPOETIN ALFA
     Indication: ANAEMIA
     Dosage: 500 MUG, UNK
     Route: 058
     Dates: start: 20150811
  10. ACETYLSALICYLIC ACID [Concomitant]
     Active Substance: ASPIRIN
     Dosage: 75 MG, UNK
     Route: 048
     Dates: start: 20150616
  11. MACROGOL [Concomitant]
     Active Substance: POLYETHYLENE GLYCOLS
     Dosage: 1 UNK, UNK
     Route: 048
     Dates: start: 20150428
  12. CARBIDOPA AND LEVODOPA [Concomitant]
     Active Substance: CARBIDOPA\LEVODOPA
     Dosage: 1 UNK, UNK
     Route: 048
     Dates: start: 20140423
  13. DEXAMETHASONE. [Suspect]
     Active Substance: DEXAMETHASONE
     Indication: PLASMA CELL MYELOMA
     Dosage: UNK UNK, PER CHEMO REGIM
     Route: 048
     Dates: start: 20160331
  14. DENOSUMAB [Concomitant]
     Active Substance: DENOSUMAB
     Indication: PRODUCT USED FOR UNKNOWN INDICATION
     Dosage: 60 MG, UNK
     Route: 058
     Dates: start: 20151103
  15. PARACETAMOL [Concomitant]
     Active Substance: ACETAMINOPHEN
     Dosage: 1000 MG, UNK
     Route: 048
     Dates: start: 20160512

REACTIONS (1)
  - Pneumonia [Unknown]

NARRATIVE: CASE EVENT DATE: 20160609
